FAERS Safety Report 23314755 (Version 2)
Quarter: 2024Q1

REPORT INFORMATION
  Report Type: Spontaneous
  Country: US (occurrence: US)
  Receive Date: 20231219
  Receipt Date: 20240129
  Transmission Date: 20240409
  Serious: Yes (Other)
  Sender: FDA-Public Use
  Company Number: US-PFM-2023-07062

PATIENT
  Sex: Female
  Weight: 6.9 kg

DRUGS (2)
  1. HEMANGEOL [Suspect]
     Active Substance: PROPRANOLOL HYDROCHLORIDE
     Indication: Haemangioma
     Dosage: 2.2 ML, BID (2/DAY)
     Route: 048
     Dates: start: 20230814
  2. HEMANGEOL [Suspect]
     Active Substance: PROPRANOLOL HYDROCHLORIDE
     Dosage: 2.6 ML, BID (2/DAY)
     Route: 048

REACTIONS (2)
  - Croup infectious [Unknown]
  - Respiratory syncytial virus infection [Unknown]
